FAERS Safety Report 15539269 (Version 1)
Quarter: 2018Q4

REPORT INFORMATION
  Report Type: Spontaneous
  Country: CZ (occurrence: CZ)
  Receive Date: 20181022
  Receipt Date: 20181022
  Transmission Date: 20190205
  Serious: Yes (Life-Threatening, Hospitalization, Disabling, Other)
  Sender: FDA-Public Use
  Company Number: CZ-009507513-1110USA03500

PATIENT
  Age: 55 Year
  Sex: Female

DRUGS (3)
  1. SORTIS [Suspect]
     Active Substance: ATORVASTATIN
     Dosage: 20 MG, QD
     Route: 048
     Dates: start: 20100216, end: 20110830
  2. EZETROL [Suspect]
     Active Substance: EZETIMIBE
     Dosage: 10 MG, QD
     Route: 048
     Dates: start: 20100216, end: 20110830
  3. LIPANTHYL [Suspect]
     Active Substance: FENOFIBRATE
     Dosage: 267 MG, QD (SRENGTH: 267 M)
     Route: 048
     Dates: start: 20100216, end: 20110830

REACTIONS (2)
  - Renal failure [Recovering/Resolving]
  - Rhabdomyolysis [Recovered/Resolved with Sequelae]

NARRATIVE: CASE EVENT DATE: 201107
